FAERS Safety Report 9998825 (Version 1)
Quarter: 2014Q1

REPORT INFORMATION
  Report Type: Spontaneous
  Country: US (occurrence: US)
  Receive Date: 20140312
  Receipt Date: 20140312
  Transmission Date: 20141002
  Serious: No
  Sender: FDA-Public Use
  Company Number: US-BIOGENIDEC-2014BI020373

PATIENT
  Age: 52 Year
  Sex: Female

DRUGS (4)
  1. TECFIDERA [Suspect]
     Indication: MULTIPLE SCLEROSIS
     Route: 048
     Dates: start: 20130528, end: 20140115
  2. BACLOFEN [Concomitant]
  3. LEXAPRO [Concomitant]
  4. PROVIGIL [Concomitant]

REACTIONS (3)
  - Gait disturbance [Unknown]
  - Asthenia [Unknown]
  - Fall [Recovered/Resolved]
